FAERS Safety Report 21898474 (Version 1)
Quarter: 2023Q1

REPORT INFORMATION
  Report Type: Spontaneous
  Country: US (occurrence: US)
  Receive Date: 20230123
  Receipt Date: 20230123
  Transmission Date: 20230418
  Serious: No
  Sender: FDA-Public Use
  Company Number: US-ELI_LILLY_AND_COMPANY-US202301001558

PATIENT
  Age: 53 Year
  Sex: Female

DRUGS (3)
  1. MOUNJARO [Suspect]
     Active Substance: TIRZEPATIDE
     Indication: Type 2 diabetes mellitus
     Dosage: 5 MG, WEEKLY (1/W)
     Route: 058
     Dates: start: 20221223
  2. ATENOLOL [Concomitant]
     Active Substance: ATENOLOL
     Indication: Cardiac flutter
  3. ATENOLOL [Concomitant]
     Active Substance: ATENOLOL
     Indication: Blood pressure abnormal

REACTIONS (3)
  - Dry mouth [Unknown]
  - Fatigue [Unknown]
  - Nausea [Unknown]

NARRATIVE: CASE EVENT DATE: 20221230
